APPROVED DRUG PRODUCT: CLORAZEPATE DIPOTASSIUM
Active Ingredient: CLORAZEPATE DIPOTASSIUM
Strength: 7.5MG
Dosage Form/Route: CAPSULE;ORAL
Application: A071728 | Product #001
Applicant: GD SEARLE LLC
Approved: Dec 18, 1987 | RLD: No | RS: No | Type: DISCN